FAERS Safety Report 8809463 (Version 1)
Quarter: 2012Q4

REPORT INFORMATION
  Report Type: 
  Country: US (occurrence: US)
  Receive Date: 20120926
  Receipt Date: 20120926
  Transmission Date: 20130627
  Serious: No
  Sender: FDA-Public Use
  Company Number: US-B.I. PHARMACEUTICALS,INC./RIDGEFIELD-2012-BP-23328BP

PATIENT
  Sex: Female

DRUGS (11)
  1. SPIRIVA [Suspect]
     Indication: CHRONIC OBSTRUCTIVE PULMONARY DISEASE
     Dosage: 18 mcg
     Route: 055
     Dates: start: 201109
  2. ATORVASTATIN [Concomitant]
     Indication: BLOOD CHOLESTEROL INCREASED
     Dosage: 20 mg
     Route: 048
     Dates: start: 201203
  3. TRICOR [Concomitant]
     Indication: BLOOD CHOLESTEROL INCREASED
     Dosage: 40 mg
     Route: 048
     Dates: start: 2011
  4. ALBUTEROL [Concomitant]
     Indication: CHRONIC OBSTRUCTIVE PULMONARY DISEASE
     Dosage: (Inhalation Solution) Strength: One vial; Daily Dose: 4 vials
     Route: 055
     Dates: start: 1997
  5. DIGOXIN [Concomitant]
     Indication: CARDIAC DISORDER
     Dosage: 0.06 mg
     Route: 048
     Dates: start: 1997
  6. AMIODARONE [Concomitant]
     Indication: CARDIAC DISORDER
     Dosage: 100 mg
     Route: 048
     Dates: start: 1997
  7. LEVOTHYROXINE [Concomitant]
     Indication: HYPOTHYROIDISM
     Dosage: 50 mcg
     Route: 048
     Dates: start: 1997
  8. FUROSEMIDE [Concomitant]
     Indication: OEDEMA
     Dosage: 40 mg
     Route: 048
     Dates: start: 1997
  9. COREG [Concomitant]
     Indication: CARDIAC DISORDER
     Dosage: 12.5 mg
     Route: 048
     Dates: start: 1997
  10. COUMADIN [Concomitant]
     Indication: BLOOD DISORDER
     Dosage: 1 mg
     Route: 048
     Dates: start: 1997
  11. VITAMIN B 12 [Concomitant]
     Indication: SUPPLEMENTATION THERAPY
     Dosage: 1000 mcg
     Route: 048
     Dates: start: 201202

REACTIONS (2)
  - Dyspnoea [Unknown]
  - Product quality issue [Unknown]
